FAERS Safety Report 13802859 (Version 3)
Quarter: 2017Q4

REPORT INFORMATION
  Report Type: Spontaneous
  Country: JP (occurrence: JP)
  Receive Date: 20170727
  Receipt Date: 20171113
  Transmission Date: 20180320
  Serious: Yes (Hospitalization, Other)
  Sender: FDA-Public Use
  Company Number: JP-009507513-1707JPN002033J

PATIENT
  Age: 80 Year
  Sex: Male

DRUGS (2)
  1. REBETOL [Suspect]
     Active Substance: RIBAVIRIN
     Dosage: 600 MG, BID
     Route: 048
     Dates: start: 20170322, end: 20170613
  2. SOVALDI [Suspect]
     Active Substance: SOFOSBUVIR
     Indication: HEPATIC CIRRHOSIS
     Dosage: 400 MG, QD
     Route: 048
     Dates: start: 20170322, end: 20170613

REACTIONS (6)
  - Skin exfoliation [Unknown]
  - Haematuria [Unknown]
  - Petit mal epilepsy [Not Recovered/Not Resolved]
  - Loss of consciousness [Recovering/Resolving]
  - Bradycardia [Not Recovered/Not Resolved]
  - Cerebrovascular disorder [Unknown]

NARRATIVE: CASE EVENT DATE: 20170705
